FAERS Safety Report 8839867 (Version 1)
Quarter: 2012Q4

REPORT INFORMATION
  Report Type: Spontaneous
  Country: DE (occurrence: None)
  Receive Date: 20121011
  Receipt Date: 20121011
  Transmission Date: 20130627
  Serious: Yes (Other)
  Sender: FDA-Public Use
  Company Number: B0836683A

PATIENT
  Age: 5 Month

DRUGS (4)
  1. LAMIVUDINE-HIV [Suspect]
     Indication: HIV INFECTION
  2. ZIDOVUDINE [Suspect]
     Indication: HIV INFECTION
  3. NEVIRAPINE [Suspect]
     Indication: HIV INFECTION
  4. LOPINAVIR + RITONAVIR [Suspect]
     Indication: HIV INFECTION

REACTIONS (6)
  - Immune reconstitution inflammatory syndrome [None]
  - Nephrotic syndrome [None]
  - Hypertension [None]
  - Kidney enlargement [None]
  - Blood HIV RNA increased [None]
  - Drug level below therapeutic [None]
